FAERS Safety Report 16905560 (Version 2)
Quarter: 2019Q4

REPORT INFORMATION
  Report Type: Report from Study
  Country: US (occurrence: US)
  Receive Date: 20191010
  Receipt Date: 20191121
  Transmission Date: 20200122
  Serious: Yes (Hospitalization)
  Sender: FDA-Public Use
  Company Number: US-SHIRE-US201932483

PATIENT
  Age: 30 Year
  Sex: Female

DRUGS (4)
  1. NATPARA (PARATHYROID HORMONE) [Suspect]
     Active Substance: PARATHYROID HORMONE
     Indication: HYPOPARATHYROIDISM
     Dosage: 25 MILLIGRAM, 2X/DAY:BID
     Route: 065
  2. NATPARA (PARATHYROID HORMONE) [Suspect]
     Active Substance: PARATHYROID HORMONE
     Dosage: 25 MICROGRAM, 1X/DAY:QD
     Route: 065
  3. FORTEO [Concomitant]
     Active Substance: TERIPARATIDE
     Indication: PRODUCT USED FOR UNKNOWN INDICATION
  4. MAG OXIDE [Concomitant]
     Active Substance: MAGNESIUM OXIDE
     Indication: HYPOCALCAEMIA
     Route: 065

REACTIONS (6)
  - Head injury [Unknown]
  - Fall [Unknown]
  - Dehydration [Unknown]
  - Recalled product [Unknown]
  - Tetany [Unknown]
  - Product dose omission [Unknown]

NARRATIVE: CASE EVENT DATE: 20191117
